FAERS Safety Report 24163732 (Version 1)
Quarter: 2024Q3

REPORT INFORMATION
  Report Type: Spontaneous
  Country: DE (occurrence: None)
  Receive Date: 20240801
  Receipt Date: 20240801
  Transmission Date: 20241017
  Serious: Yes (Death, Hospitalization, Other)
  Sender: ASTRAZENECA
  Company Number: 2024A172415

PATIENT
  Age: 54 Year
  Sex: Male

DRUGS (1)
  1. DURVALUMAB [Suspect]
     Active Substance: DURVALUMAB
     Indication: Jaundice
     Route: 042

REACTIONS (9)
  - General physical health deterioration [Fatal]
  - Cholangitis [Unknown]
  - Liver disorder [Unknown]
  - Lymphadenopathy [Unknown]
  - Deep vein thrombosis [Unknown]
  - Anaemia [Unknown]
  - Device occlusion [Unknown]
  - Pain [Unknown]
  - Off label use [Unknown]
